FAERS Safety Report 5374445-X (Version None)
Quarter: 2007Q2

REPORT INFORMATION
  Report Type: 
  Country: None (occurrence: None)
  Receive Date: 20070629
  Receipt Date: 20070622
  Transmission Date: 20071010
  Serious: Yes (Hospitalization)
  Sender: FDA-Public Use
  Company Number: AU-AVENTIS-200714201GDDC

PATIENT
  Age: 79 Year
  Sex: Male
  Weight: 99.3 kg

DRUGS (7)
  1. DOCETAXEL [Suspect]
     Route: 042
     Dates: start: 20070417, end: 20070417
  2. INVESTIGATIONAL DRUG [Suspect]
     Route: 058
     Dates: start: 20070306, end: 20070423
  3. PREDNISOLONE [Concomitant]
     Indication: PROSTATE CANCER
     Dates: start: 20070306
  4. CIPRAMIL                           /00582602/ [Concomitant]
     Indication: ANXIETY
     Dates: start: 20070313
  5. LIPITOR [Concomitant]
     Indication: HYPERTENSION
     Dates: start: 19950101
  6. ASPIRIN [Concomitant]
     Indication: PROPHYLAXIS
     Dates: start: 19930101
  7. EZETROL [Concomitant]
     Dates: start: 20020101

REACTIONS (2)
  - FEBRILE NEUTROPENIA [None]
  - URINARY RETENTION [None]
